FAERS Safety Report 6825042-8 (Version None)
Quarter: 2010Q3

REPORT INFORMATION
  Report Type: 
  Country: None (occurrence: None)
  Receive Date: 20100708
  Receipt Date: 20061231
  Transmission Date: 20110219
  Serious: No
  Sender: FDA-Public Use
  Company Number: US-PFIZER INC-2007001783

PATIENT
  Sex: Female
  Weight: 113.4 kg

DRUGS (7)
  1. CHANTIX [Suspect]
     Indication: SMOKING CESSATION THERAPY
     Dates: start: 20061212
  2. ZOCOR [Concomitant]
  3. NEXIUM [Concomitant]
  4. WELLBUTRIN XL [Concomitant]
  5. LEXAPRO [Concomitant]
  6. CALCIUM CARBONATE [Concomitant]
  7. ACTONEL [Concomitant]

REACTIONS (1)
  - NAUSEA [None]
